FAERS Safety Report 11957499 (Version 3)
Quarter: 2016Q1

REPORT INFORMATION
  Report Type: Report from Study
  Country: HU (occurrence: HU)
  Receive Date: 20160126
  Receipt Date: 20160211
  Transmission Date: 20160526
  Serious: Yes (Death, Hospitalization)
  Sender: FDA-Public Use
  Company Number: HU-ABBVIE-16P-076-1543025-00

PATIENT
  Age: 67 Year
  Sex: Male
  Weight: 98 kg

DRUGS (4)
  1. DUODOPA [Suspect]
     Active Substance: CARBIDOPA\LEVODOPA
     Indication: PARKINSON^S DISEASE
     Dosage: MORNING DOSE: 9.0 ML; CONTINUOUS DOSE: 3.8ML/H; EXTRA DOSE: 1.2 ML
     Route: 050
     Dates: start: 20140921, end: 20160124
  2. VALSARTAN. [Concomitant]
     Active Substance: VALSARTAN
     Indication: HYPERTENSION
     Route: 048
     Dates: end: 20160124
  3. NEBIVOLOL. [Concomitant]
     Active Substance: NEBIVOLOL
     Indication: ARRHYTHMIA
     Route: 048
     Dates: end: 20160124
  4. VALSOCARD [Concomitant]
     Indication: HYPERTENSION
     Route: 048
     Dates: end: 20160124

REACTIONS (2)
  - Acute myocardial infarction [Fatal]
  - Infarction [Not Recovered/Not Resolved]

NARRATIVE: CASE EVENT DATE: 20160118
